FAERS Safety Report 9703030 (Version 2)
Quarter: 2014Q1

REPORT INFORMATION
  Report Type: Spontaneous
  Country: US (occurrence: US)
  Receive Date: 20131122
  Receipt Date: 20140107
  Transmission Date: 20141002
  Serious: No
  Sender: FDA-Public Use
  Company Number: US-009507513-1311USA007573

PATIENT
  Age: 36 Year
  Sex: Female
  Weight: 88.43 kg

DRUGS (3)
  1. NEXPLANON [Suspect]
     Indication: HAEMORRHAGE
     Dosage: UNK
     Route: 059
     Dates: start: 20130118, end: 201311
  2. NEXPLANON [Suspect]
     Dosage: UNK
     Route: 059
     Dates: start: 201311
  3. INSULIN [Concomitant]

REACTIONS (2)
  - Device kink [Recovered/Resolved]
  - Metrorrhagia [Not Recovered/Not Resolved]
